FAERS Safety Report 20548444 (Version 1)
Quarter: 2022Q1

REPORT INFORMATION
  Report Type: Spontaneous
  Country: US (occurrence: US)
  Receive Date: 20220303
  Receipt Date: 20220303
  Transmission Date: 20220424
  Serious: No
  Sender: FDA-Public Use
  Company Number: US-ALLERGAN-2108957US

PATIENT
  Sex: Male

DRUGS (3)
  1. RESTASIS [Suspect]
     Active Substance: CYCLOSPORINE
     Indication: Dry eye
     Dosage: 2 GTT, BID
     Route: 047
     Dates: start: 2020
  2. NO MORE TEARS [Concomitant]
     Indication: Dry eye
     Route: 047
  3. FAMILY CARE EYE DROPS [Concomitant]
     Indication: Dry eye
     Route: 047

REACTIONS (1)
  - Therapy interrupted [Unknown]
